FAERS Safety Report 4551409-7 (Version None)
Quarter: 2005Q1

REPORT INFORMATION
  Report Type: 
  Country: None (occurrence: None)
  Receive Date: 20050111
  Receipt Date: 20050111
  Transmission Date: 20050727
  Serious: Yes (Hospitalization)
  Sender: FDA-Public Use
  Company Number: None

PATIENT
  Sex: Male
  Weight: 113 kg

DRUGS (5)
  1. VANCOMYCIN [Suspect]
     Indication: CELLULITIS STAPHYLOCOCCAL
     Dosage: 1 GM Q 12 H IV
     Route: 042
     Dates: start: 20041110, end: 20071205
  2. ALLEGRA [Concomitant]
  3. AMBIC [Concomitant]
  4. HYDROCHLOROTHIAZIDE [Concomitant]
  5. ACCUPRIL [Concomitant]

REACTIONS (3)
  - INFUSION RELATED REACTION [None]
  - PRURITUS [None]
  - RASH [None]
